FAERS Safety Report 4657438-7 (Version None)
Quarter: 2005Q2

REPORT INFORMATION
  Report Type: 
  Country: None (occurrence: None)
  Receive Date: 20050509
  Receipt Date: 20050509
  Transmission Date: 20051028
  Serious: Yes (Hospitalization, Other)
  Sender: FDA-Public Use
  Company Number: None

PATIENT
  Age: 69 Year
  Sex: Male
  Weight: 126.1 kg

DRUGS (8)
  1. DR. SCHOLL'S CORN REMOVERS DISC [Suspect]
     Indication: CORN REMOVAL
     Dosage: TOP-DERM
     Route: 061
  2. MESTINON [Concomitant]
  3. CELLCEPT [Concomitant]
  4. K-DUR 10 [Concomitant]
  5. ENALAPRIL MALEATE [Concomitant]
  6. PREDNISONE [Concomitant]
  7. FUROSEMIDE [Concomitant]
  8. LOVENOX [Concomitant]

REACTIONS (21)
  - ABSCESS LIMB [None]
  - BONE INFECTION [None]
  - CANDIDIASIS [None]
  - CELLULITIS [None]
  - ENTEROCOCCAL INFECTION [None]
  - IMMUNOSUPPRESSION [None]
  - IMPAIRED HEALING [None]
  - MYASTHENIA GRAVIS [None]
  - OBESITY [None]
  - ONYCHOMYCOSIS [None]
  - OSTEOMYELITIS [None]
  - PAIN [None]
  - PHARMACEUTICAL PRODUCT COMPLAINT [None]
  - PSEUDOMONAS INFECTION [None]
  - SKIN EXFOLIATION [None]
  - SKIN HAEMORRHAGE [None]
  - SLEEP APNOEA SYNDROME [None]
  - STAPHYLOCOCCAL INFECTION [None]
  - STREPTOCOCCAL INFECTION [None]
  - TREATMENT NONCOMPLIANCE [None]
  - WOUND [None]
